FAERS Safety Report 9127730 (Version 1)
Quarter: 2013Q1

REPORT INFORMATION
  Report Type: Spontaneous
  Country: US (occurrence: US)
  Receive Date: 20130228
  Receipt Date: 20130228
  Transmission Date: 20140127
  Serious: Yes (Hospitalization, Other)
  Sender: FDA-Public Use
  Company Number: US-GLAXOSMITHKLINE-A0997011A

PATIENT
  Age: 15 Year
  Sex: Female

DRUGS (5)
  1. LAMICTAL [Suspect]
     Indication: CONVULSION
     Route: 065
  2. SINGULAR [Concomitant]
  3. PRILOSEC [Concomitant]
  4. VITAMIN D [Concomitant]
  5. NASOCORT [Concomitant]

REACTIONS (1)
  - Rash [Unknown]
